FAERS Safety Report 15986116 (Version 1)
Quarter: 2019Q1

REPORT INFORMATION
  Report Type: Spontaneous
  Country: US (occurrence: US)
  Receive Date: 20190220
  Receipt Date: 20190220
  Transmission Date: 20190418
  Serious: Yes (Death)
  Sender: FDA-Public Use
  Company Number: None

PATIENT
  Age: 56 Year
  Sex: Male

DRUGS (7)
  1. DIGOX, DULAUDID, FENOFIBRATE [Concomitant]
  2. PROPAFENONE, RAMIPRIL [Concomitant]
  3. ROPINIROLE, WARFARIN [Concomitant]
  4. METOPROL, OXYCODONE [Concomitant]
  5. ATORVASTATIN, B12, CARDIZEM [Concomitant]
  6. HYDROCHLOROT, METFORMIN, METOCLOPRAM [Concomitant]
  7. SUTENT [Suspect]
     Active Substance: SUNITINIB MALATE
     Indication: RENAL CANCER
     Route: 048
     Dates: start: 20190201, end: 20190217

REACTIONS (1)
  - Death [None]

NARRATIVE: CASE EVENT DATE: 20190217
